FAERS Safety Report 7712405-1 (Version None)
Quarter: 2011Q3

REPORT INFORMATION
  Report Type: 
  Country: None (occurrence: None)
  Receive Date: 20110826
  Receipt Date: 20110822
  Transmission Date: 20111222
  Serious: Yes (Other)
  Sender: FDA-Public Use
  Company Number: US-ROCHE-798649

PATIENT
  Sex: Female

DRUGS (6)
  1. KLONOPIN [Suspect]
     Route: 065
  2. KLONOPIN [Suspect]
     Route: 065
  3. LAMICTAL [Suspect]
     Route: 065
  4. TRANDATE [Suspect]
     Route: 065
  5. SANDIMMUNE [Suspect]
     Route: 065
  6. RAPAMUNE [Suspect]
     Route: 065

REACTIONS (1)
  - RENAL FAILURE [None]
